FAERS Safety Report 22361595 (Version 1)
Quarter: 2023Q2

REPORT INFORMATION
  Report Type: Report from Study
  Country: US (occurrence: US)
  Receive Date: 20230524
  Receipt Date: 20230524
  Transmission Date: 20230722
  Serious: Yes (Other)
  Sender: FDA-Public Use
  Company Number: US-UCBSA-2023025606

PATIENT
  Sex: Female

DRUGS (19)
  1. ROTIGOTINE [Suspect]
     Active Substance: ROTIGOTINE
     Indication: Parkinson^s disease
     Dosage: 2 MILLIGRAM, ONCE DAILY (QD)
     Route: 062
  2. ROTIGOTINE [Suspect]
     Active Substance: ROTIGOTINE
     Dosage: 3 MILLIGRAM, ONCE DAILY (QD)
     Route: 062
     Dates: start: 202212
  3. AMANTADINE [Suspect]
     Active Substance: AMANTADINE
     Indication: Product used for unknown indication
     Dosage: UNK
  4. ENTACAPONE [Suspect]
     Active Substance: ENTACAPONE
     Indication: Product used for unknown indication
     Dosage: UNK
  5. ROPINIROLE [Suspect]
     Active Substance: ROPINIROLE
     Indication: Product used for unknown indication
     Dosage: 1.5 MILLIGRAM, 4X/DAY (QID)
  6. SINEMET CR [Concomitant]
     Active Substance: CARBIDOPA\LEVODOPA
     Indication: Product used for unknown indication
     Dosage: UNK
  7. BUPROPION [Concomitant]
     Active Substance: BUPROPION
     Indication: Product used for unknown indication
     Dosage: 150 MILLIGRAM, ONCE DAILY (QD)
  8. CARBIDOPA\LEVODOPA [Concomitant]
     Active Substance: CARBIDOPA\LEVODOPA
     Indication: Product used for unknown indication
     Dosage: 25 MG-100 MG
     Route: 048
  9. CYANOCOBALAMIN [Concomitant]
     Active Substance: CYANOCOBALAMIN
     Indication: Product used for unknown indication
     Dosage: 50 MICROGRAM, ONCE DAILY (QD)
     Route: 048
  10. FAMOTIDINE [Concomitant]
     Active Substance: FAMOTIDINE
     Indication: Product used for unknown indication
     Dosage: UNK, AS NEEDED (PRN)
  11. FEXOFENADINE [Concomitant]
     Active Substance: FEXOFENADINE HYDROCHLORIDE
     Indication: Product used for unknown indication
     Dosage: UNK
     Route: 048
  12. IBUPROFEN [Concomitant]
     Active Substance: IBUPROFEN
     Indication: Product used for unknown indication
     Dosage: UNK
  13. LINACLOTIDE [Concomitant]
     Active Substance: LINACLOTIDE
     Indication: Product used for unknown indication
     Dosage: 145 MICROGRAM, ONCE DAILY (QD)
     Route: 048
  14. LUBIPROSTONE [Concomitant]
     Active Substance: LUBIPROSTONE
     Indication: Product used for unknown indication
     Dosage: 8 MICROGRAM, 2X/DAY (BID)
  15. MONTELUKAST [Concomitant]
     Active Substance: MONTELUKAST SODIUM
     Indication: Product used for unknown indication
     Dosage: 10 MILLIGRAM, ONCE DAILY (QD)
     Route: 048
  16. OMEPRAZOLE [Concomitant]
     Active Substance: OMEPRAZOLE
     Indication: Product used for unknown indication
     Dosage: 20 MILLIGRAM, ONCE DAILY (QD)
  17. ONDANSETRON [Concomitant]
     Active Substance: ONDANSETRON
     Indication: Product used for unknown indication
     Dosage: 4 MILLIGRAM, AS NEEDED (PRN)
  18. OXYBUTYNIN [Concomitant]
     Active Substance: OXYBUTYNIN
     Indication: Product used for unknown indication
     Dosage: 10 MILLIGRAM, ONCE DAILY (QD)
     Route: 048
  19. TRAZODONE [Concomitant]
     Active Substance: TRAZODONE HYDROCHLORIDE
     Indication: Product used for unknown indication
     Dosage: 50 MILLIGRAM, AS NEEDED (PRN)
     Route: 048

REACTIONS (27)
  - Dystonia [Unknown]
  - Hallucination [Unknown]
  - Dizziness [Unknown]
  - Constipation [Unknown]
  - Hypertonic bladder [Unknown]
  - Memory impairment [Unknown]
  - Disturbance in attention [Unknown]
  - Tremor [Unknown]
  - Body temperature increased [Unknown]
  - Nausea [Unknown]
  - Muscle rigidity [Unknown]
  - Foot deformity [Unknown]
  - Visual impairment [Unknown]
  - Motor dysfunction [Unknown]
  - Gait disturbance [Unknown]
  - Hypersensitivity [Unknown]
  - Illusion [Unknown]
  - Abnormal dreams [Unknown]
  - Fatigue [Unknown]
  - Apathy [Unknown]
  - Depression [Unknown]
  - Exercise lack of [Unknown]
  - Confusional state [Unknown]
  - Sleep disorder [Unknown]
  - Rapid eye movement sleep behaviour disorder [Unknown]
  - Fall [Unknown]
  - Musculoskeletal stiffness [Unknown]
